FAERS Safety Report 4377727-3 (Version None)
Quarter: 2004Q2

REPORT INFORMATION
  Report Type: 
  Country: None (occurrence: None)
  Receive Date: 20040615
  Receipt Date: 20040602
  Transmission Date: 20050107
  Serious: Yes (Hospitalization)
  Sender: FDA-Public Use
  Company Number: PHRM2004FR02009

PATIENT
  Age: 58 Year
  Sex: Male

DRUGS (5)
  1. VOLTAREN [Suspect]
     Indication: PAIN IN EXTREMITY
     Dosage: 50 MG, QD
     Route: 048
     Dates: start: 20040312, end: 20040315
  2. DI-ANTALVIC [Suspect]
     Indication: PAIN IN EXTREMITY
     Route: 048
     Dates: start: 20040312, end: 20040315
  3. PROTOPIC [Suspect]
     Dosage: EVERY 3 WEEKS
     Route: 061
     Dates: start: 20030909, end: 20040315
  4. AERIUS [Concomitant]
     Indication: ECZEMA
     Route: 048
  5. ORBENIN CAP [Concomitant]
     Indication: FURUNCLE
     Dates: start: 20040214, end: 20040304

REACTIONS (3)
  - MONOPLEGIA [None]
  - NECROTISING FASCIITIS STREPTOCOCCAL [None]
  - SEPSIS [None]
